FAERS Safety Report 4898180-7 (Version None)
Quarter: 2006Q1

REPORT INFORMATION
  Report Type: 
  Country: None (occurrence: None)
  Receive Date: 20060127
  Receipt Date: 20060111
  Transmission Date: 20060701
  Serious: Yes (Hospitalization, Disabling)
  Sender: FDA-Public Use
  Company Number: 384554

PATIENT
  Age: 20 Year
  Sex: Female
  Weight: 65.8 kg

DRUGS (3)
  1. ACCUTANE [Suspect]
     Indication: ACNE
     Dosage: ORAL
     Route: 048
     Dates: start: 19991206, end: 20000515
  2. MINOCYCLINE HCL [Concomitant]
  3. ORTHO CYCLEN (ETHINYL ESTRADIOL/NORGESTIMATE) [Concomitant]

REACTIONS (32)
  - ANAEMIA [None]
  - ANXIETY [None]
  - AORTIC VALVE CALCIFICATION [None]
  - BACK DISORDER [None]
  - BACTERIA WOUND IDENTIFIED [None]
  - COLITIS ULCERATIVE [None]
  - CROHN'S DISEASE [None]
  - CRYING [None]
  - DEPRESSION [None]
  - DIARRHOEA [None]
  - DRUG INEFFECTIVE [None]
  - DRY SKIN [None]
  - ECZEMA [None]
  - ESCHERICHIA INFECTION [None]
  - FIBROSIS [None]
  - GASTROINTESTINAL DISORDER [None]
  - IMPAIRED HEALING [None]
  - INFLAMMATION OF WOUND [None]
  - INFLAMMATORY BOWEL DISEASE [None]
  - INGROWING NAIL [None]
  - INSOMNIA [None]
  - INTESTINAL HAEMORRHAGE [None]
  - IRRITABLE BOWEL SYNDROME [None]
  - MITRAL VALVE INCOMPETENCE [None]
  - MULTI-ORGAN DISORDER [None]
  - NON-CARDIAC CHEST PAIN [None]
  - PALPITATIONS [None]
  - RECTAL HAEMORRHAGE [None]
  - TACHYCARDIA [None]
  - TENDERNESS [None]
  - TENSION [None]
  - VOMITING [None]
